FAERS Safety Report 4838571-3 (Version None)
Quarter: 2005Q4

REPORT INFORMATION
  Report Type: 
  Country: None (occurrence: None)
  Receive Date: 20051123
  Receipt Date: 20051123
  Transmission Date: 20060501
  Serious: Yes (Hospitalization)
  Sender: FDA-Public Use
  Company Number: None

PATIENT
  Age: 55 Year
  Sex: Male
  Weight: 74.4 kg

DRUGS (10)
  1. PHENYTOIN [Suspect]
     Indication: CONVULSION
     Dosage: 600MG,300MG BI, ORAL
     Route: 048
  2. DILANTIN [Concomitant]
  3. THIAMINE HCL [Concomitant]
  4. LABETALOL [Concomitant]
  5. OXYCODONE/ACETAMINOPHEN (UD) [Concomitant]
  6. FLUTICASONE SOLN [Concomitant]
  7. ETODOLAC [Concomitant]
  8. ABSORBASE TOP OINT [Concomitant]
  9. ASPIRIN [Concomitant]
  10. RANITIDINE [Concomitant]

REACTIONS (4)
  - COORDINATION ABNORMAL [None]
  - DRUG TOXICITY [None]
  - TREATMENT NONCOMPLIANCE [None]
  - VISION BLURRED [None]
